FAERS Safety Report 6767452-3 (Version None)
Quarter: 2010Q2

REPORT INFORMATION
  Report Type: 
  Country: None (occurrence: None)
  Receive Date: 20100614
  Receipt Date: 20100601
  Transmission Date: 20101027
  Serious: Yes (Hospitalization, Other)
  Sender: FDA-Public Use
  Company Number: PHHY2010JP36096

PATIENT
  Age: 59 Year
  Sex: Female

DRUGS (2)
  1. SANDOSTATIN [Suspect]
     Indication: CARCINOID TUMOUR
     Dosage: 100 UG DAILY
     Route: 058
     Dates: start: 20090820, end: 20090901
  2. SANDOSTATIN LAR [Suspect]
     Indication: CARCINOID TUMOUR
     Dosage: UNK
     Route: 030
     Dates: start: 20090902, end: 20090902

REACTIONS (10)
  - ABDOMINAL DISTENSION [None]
  - ABDOMINAL PAIN [None]
  - DECREASED APPETITE [None]
  - DIARRHOEA [None]
  - FREQUENT BOWEL MOVEMENTS [None]
  - HEPATIC EMBOLISATION [None]
  - HEPATIC ENZYME INCREASED [None]
  - LIVER CARCINOMA RUPTURED [None]
  - MALIGNANT NEOPLASM PROGRESSION [None]
  - NAUSEA [None]
